FAERS Safety Report 8122239-4 (Version None)
Quarter: 2012Q1

REPORT INFORMATION
  Report Type: 
  Country: None (occurrence: None)
  Receive Date: 20120208
  Receipt Date: 20120126
  Transmission Date: 20120608
  Serious: Yes (Other)
  Sender: FDA-Public Use
  Company Number: BR-ROCHE-1034887

PATIENT
  Age: 72 Year
  Sex: Male
  Weight: 70 kg

DRUGS (9)
  1. MABTHERA [Suspect]
     Indication: NON-HODGKIN'S LYMPHOMA
     Route: 042
     Dates: start: 20120101
  2. ALLOPURINOL [Concomitant]
  3. PREDNISONE [Concomitant]
  4. VINCRISTINE [Concomitant]
  5. DOXORUBICIN HCL [Concomitant]
  6. BACTRIM [Concomitant]
  7. CYCLOPHOSPHAMIDE [Concomitant]
  8. OMEPRAZOLE [Concomitant]
  9. LEXAPRO [Concomitant]

REACTIONS (3)
  - HYPOGLYCAEMIA [None]
  - MALAISE [None]
  - HYPERHIDROSIS [None]
